FAERS Safety Report 9579315 (Version 1)
Quarter: 2013Q4

REPORT INFORMATION
  Report Type: Spontaneous
  Country: US (occurrence: US)
  Receive Date: 20131001
  Receipt Date: 20131001
  Transmission Date: 20140711
  Serious: No
  Sender: FDA-Public Use
  Company Number: US-AMGEN-USASP2013017375

PATIENT
  Age: 61 Year
  Sex: Female
  Weight: 52.15 kg

DRUGS (10)
  1. ENBREL [Suspect]
     Indication: PRODUCT USED FOR UNKNOWN INDICATION
     Dosage: 50 MG, QWK
     Route: 058
  2. NEXIUM                             /01479302/ [Concomitant]
     Dosage: 40 MG, UNK
  3. METHOTREXATE [Concomitant]
     Dosage: 2.5 MG, UNK
  4. FOLIC ACID [Concomitant]
     Dosage: UNK
  5. SULFASALAZIN [Concomitant]
     Dosage: 500 MG, UNK
  6. VITAMIN D                          /00107901/ [Concomitant]
     Dosage: 1000 UNIT, UNK
  7. CALCIUM D                          /00944201/ [Concomitant]
     Dosage: UNK
  8. FISH OIL [Concomitant]
     Dosage: UNK
  9. PROGESTERONE [Concomitant]
     Dosage: UNK
  10. ESTROGEL [Concomitant]
     Dosage: UNK

REACTIONS (2)
  - Rash [Recovered/Resolved]
  - Inflammation [Recovered/Resolved]
